FAERS Safety Report 24182832 (Version 2)
Quarter: 2024Q4

REPORT INFORMATION
  Report Type: Report from Study
  Country: DE (occurrence: DE)
  Receive Date: 20240807
  Receipt Date: 20241017
  Transmission Date: 20250114
  Serious: Yes (Hospitalization)
  Sender: ALEXION PHARMACEUTICALS
  Company Number: 2024A172752

PATIENT
  Age: 85 Year
  Weight: 68 kg

DRUGS (26)
  1. CALQUENCE [Suspect]
     Active Substance: ACALABRUTINIB
     Indication: Chronic lymphocytic leukaemia
     Dosage: UNK, QD
  2. CALQUENCE [Suspect]
     Active Substance: ACALABRUTINIB
     Dosage: UNK, QD
  3. CALQUENCE [Suspect]
     Active Substance: ACALABRUTINIB
     Dosage: UNK, QD
  4. CALQUENCE [Suspect]
     Active Substance: ACALABRUTINIB
     Dosage: UNK, QD
  5. PRIVIGEN [Suspect]
     Active Substance: HUMAN IMMUNOGLOBULIN G
     Indication: Secondary immunodeficiency
     Dosage: 30 G, TOT
  6. PRIVIGEN [Suspect]
     Active Substance: HUMAN IMMUNOGLOBULIN G
     Dosage: 30 G, TOT
  7. PRIVIGEN [Suspect]
     Active Substance: HUMAN IMMUNOGLOBULIN G
     Dosage: 30 G, TOT
  8. PRIVIGEN [Suspect]
     Active Substance: HUMAN IMMUNOGLOBULIN G
     Dosage: 30 G, TOT
  9. PRIVIGEN [Suspect]
     Active Substance: HUMAN IMMUNOGLOBULIN G
     Dosage: 30 G, TOT
  10. PRIVIGEN [Suspect]
     Active Substance: HUMAN IMMUNOGLOBULIN G
     Dosage: 30 G, TOT
  11. PRIVIGEN [Suspect]
     Active Substance: HUMAN IMMUNOGLOBULIN G
     Dosage: 30 G, TOT
  12. PRIVIGEN [Suspect]
     Active Substance: HUMAN IMMUNOGLOBULIN G
     Dosage: 30 G, TOT
  13. PRIVIGEN [Suspect]
     Active Substance: HUMAN IMMUNOGLOBULIN G
     Dosage: 30 UNK
  14. PRIVIGEN [Suspect]
     Active Substance: HUMAN IMMUNOGLOBULIN G
     Dosage: 30 UNK
  15. PRIVIGEN [Suspect]
     Active Substance: HUMAN IMMUNOGLOBULIN G
     Dosage: 30 UNK
  16. PRIVIGEN [Suspect]
     Active Substance: HUMAN IMMUNOGLOBULIN G
     Dosage: 30 UNK
  17. CLEMASTINE [Concomitant]
     Active Substance: CLEMASTINE
     Indication: Premedication
     Dosage: 2 MG, FREQUENCY: UNK
  18. PREDNISOLONE [Concomitant]
     Active Substance: PREDNISOLONE
     Indication: Premedication
     Dosage: 50 MG, FREQUENCY: UNK
  19. TORSEMIDE [Concomitant]
     Active Substance: TORSEMIDE
  20. ATORVASTATIN [Concomitant]
     Active Substance: ATORVASTATIN
  21. APIXABAN [Concomitant]
     Active Substance: APIXABAN
  22. ACALABRUTINIB [Concomitant]
     Active Substance: ACALABRUTINIB
  23. ESOMEPRAZOLE [Concomitant]
     Active Substance: ESOMEPRAZOLE
  24. EMPAGLIFLOZIN [Concomitant]
     Active Substance: EMPAGLIFLOZIN
  25. METOPROLOL SUCCINATE [Concomitant]
     Active Substance: METOPROLOL SUCCINATE
  26. RAMIPRIL [Concomitant]
     Active Substance: RAMIPRIL

REACTIONS (2)
  - Ureteral wall thickening [Recovered/Resolved]
  - Acquired phimosis [Recovered/Resolved]
